FAERS Safety Report 6889724-4 (Version None)
Quarter: 2010Q3

REPORT INFORMATION
  Report Type: 
  Country: None (occurrence: None)
  Receive Date: 20100730
  Receipt Date: 20080409
  Transmission Date: 20110219
  Serious: No
  Sender: FDA-Public Use
  Company Number: US-PFIZER INC-2008031389

PATIENT
  Sex: Male
  Weight: 62.14 kg

DRUGS (3)
  1. LIPITOR [Suspect]
     Indication: BLOOD CHOLESTEROL INCREASED
     Dates: start: 20080107
  2. FOSAMAX [Concomitant]
  3. TESTOSTERONE [Concomitant]

REACTIONS (1)
  - BLOOD PRESSURE INCREASED [None]
